FAERS Safety Report 21335113 (Version 2)
Quarter: 2022Q3

REPORT INFORMATION
  Report Type: Spontaneous
  Country: CO (occurrence: CO)
  Receive Date: 20220914
  Receipt Date: 20220920
  Transmission Date: 20221027
  Serious: Yes (Other)
  Sender: FDA-Public Use
  Company Number: CO-PFIZER INC-PV202200060034

PATIENT
  Sex: Female

DRUGS (1)
  1. ENBREL [Suspect]
     Active Substance: ETANERCEPT
     Indication: Rheumatoid arthritis
     Dosage: 50 MILLIGRAM, EVERY 8 DAYS
     Route: 058

REACTIONS (15)
  - Atrioventricular block [Unknown]
  - Myocardial infarction [Unknown]
  - Haematoma infection [Unknown]
  - Off label use [Unknown]
  - Nausea [Unknown]
  - Malaise [Unknown]
  - Haematoma [Unknown]
  - Erythema [Unknown]
  - Memory impairment [Unknown]
  - Contusion [Unknown]
  - Feeling abnormal [Unknown]
  - Injection site swelling [Unknown]
  - Headache [Unknown]
  - Injection site pruritus [Unknown]
  - Injection site pain [Recovering/Resolving]
